FAERS Safety Report 13194599 (Version 1)
Quarter: 2017Q1

REPORT INFORMATION
  Report Type: Spontaneous
  Country: IT (occurrence: IT)
  Receive Date: 20170207
  Receipt Date: 20170207
  Transmission Date: 20170428
  Serious: No
  Sender: FDA-Public Use
  Company Number: IT-JAZZ-2016-IT-011427

PATIENT
  Age: 56 Year
  Sex: Female

DRUGS (2)
  1. PRIALT [Suspect]
     Active Substance: ZICONOTIDE ACETATE
     Indication: PHANTOM PAIN
     Dosage: 0.1 ?G, QH
     Route: 037
  2. PRIALT [Suspect]
     Active Substance: ZICONOTIDE ACETATE
     Dosage: 0.063 ?G, QH
     Route: 037

REACTIONS (2)
  - Amnesia [Unknown]
  - Dysgeusia [Unknown]
